FAERS Safety Report 5132685-9 (Version None)
Quarter: 2006Q4

REPORT INFORMATION
  Report Type: 
  Country: None (occurrence: None)
  Receive Date: 20061017
  Receipt Date: 20061004
  Transmission Date: 20070319
  Serious: Yes (Other)
  Sender: FDA-Public Use
  Company Number: JP-2006-029492

PATIENT
  Age: 30 Year
  Sex: Female

DRUGS (1)
  1. BETAFERON (INTERFERON BETA - 1B)  INJECTION, 250?G [Suspect]
     Indication: MULTIPLE SCLEROSIS

REACTIONS (3)
  - LUPUS NEPHRITIS [None]
  - NEPHROTIC SYNDROME [None]
  - THERAPY NON-RESPONDER [None]
